FAERS Safety Report 4377423-2 (Version None)
Quarter: 2004Q2

REPORT INFORMATION
  Report Type: 
  Country: None (occurrence: None)
  Receive Date: 20040609
  Receipt Date: 20040319
  Transmission Date: 20050107
  Serious: No
  Sender: FDA-Public Use
  Company Number: 2004195830US

PATIENT
  Age: 75 Year
  Sex: Male
  Weight: 83.9 kg

DRUGS (5)
  1. BEXTRA [Suspect]
     Indication: ARTHRITIS
     Dosage: 10 MG, QD,
     Dates: start: 20040116
  2. LIPITOR [Concomitant]
  3. NEXIUM (CHLORMADINONE ACETATE) [Concomitant]
  4. VIAGRA [Concomitant]
  5. HYTRIN [Concomitant]

REACTIONS (2)
  - FAECES PALE [None]
  - LOOSE STOOLS [None]
